FAERS Safety Report 6505492-X (Version None)
Quarter: 2009Q4

REPORT INFORMATION
  Report Type: 
  Country: None (occurrence: None)
  Receive Date: 20091218
  Receipt Date: 20091207
  Transmission Date: 20100525
  Serious: Yes (Death)
  Sender: FDA-Public Use
  Company Number: US-PFIZER INC-2009307209

PATIENT
  Sex: Female

DRUGS (2)
  1. XANAX [Suspect]
  2. SEROQUEL [Suspect]

REACTIONS (1)
  - ACCIDENTAL OVERDOSE [None]
